FAERS Safety Report 8926966 (Version 4)
Quarter: 2013Q4

REPORT INFORMATION
  Report Type: Report from Study
  Country: JP (occurrence: JP)
  Receive Date: 20121127
  Receipt Date: 20131113
  Transmission Date: 20140711
  Serious: No
  Sender: FDA-Public Use
  Company Number: JP-VERTEX PHARMACEUTICAL INC.-2012-025070

PATIENT
  Age: 47 Year
  Sex: Male

DRUGS (14)
  1. VX-950 (TELAPREVIR) [Suspect]
     Indication: CHRONIC HEPATITIS C
     Dosage: 1500 MG, QD
     Route: 048
     Dates: start: 20120906
  2. RIBAVIRIN [Suspect]
     Indication: CHRONIC HEPATITIS C
     Dosage: 800 MG, QD
     Route: 048
     Dates: start: 20120906, end: 20121004
  3. RIBAVIRIN [Suspect]
     Dosage: 600 MG, QD
     Route: 048
     Dates: start: 20121005, end: 20130222
  4. PEGINTERFERON ALFA-2B [Suspect]
     Indication: CHRONIC HEPATITIS C
     Dosage: 1.5 ?G/KG, QW
     Route: 058
     Dates: start: 20120906, end: 20130215
  5. FEBURIC [Concomitant]
     Dosage: 10 MG, QD
     Route: 048
     Dates: start: 20120910, end: 20120924
  6. FEBURIC [Concomitant]
     Dosage: 10 MG, QD
     Route: 048
  7. DIACORT [Concomitant]
     Dosage: 30 G, QD
     Route: 061
     Dates: start: 20120910, end: 20120924
  8. ALLELOCK OD [Concomitant]
     Dosage: 10 MG, QD
     Route: 048
     Dates: start: 20120910, end: 20120920
  9. PREDONINE [Concomitant]
     Dosage: 20 MG, QD
     Route: 048
     Dates: start: 20120920
  10. PREDONINE [Concomitant]
     Dosage: 10 MG, QD
     Route: 048
     Dates: end: 20121129
  11. GASTER D [Concomitant]
     Dosage: 40 MG, QD
     Route: 048
     Dates: start: 20120921, end: 20121129
  12. HIRUDOID [Concomitant]
     Dosage: 50 G, QD/PRN
     Route: 061
     Dates: start: 20120924
  13. LENDORMIN [Concomitant]
     Dosage: 0.25 MG, QD/PRN
     Route: 048
     Dates: start: 20120910
  14. MAGMITT [Concomitant]
     Dosage: 2 G, QD
     Route: 048
     Dates: start: 20121025

REACTIONS (2)
  - Renal impairment [Recovered/Resolved]
  - Hyperuricaemia [Recovered/Resolved]
